FAERS Safety Report 8358622 (Version 10)
Quarter: 2014Q2

REPORT INFORMATION
  Report Type: Report from Study
  Country: CA (occurrence: CA)
  Receive Date: 20120127
  Receipt Date: 20140519
  Transmission Date: 20141212
  Serious: Yes (Other)
  Sender: FDA-Public Use
  Company Number: PHHY2010CA60430

PATIENT
  Sex: Female

DRUGS (3)
  1. SANDOSTATIN LAR [Suspect]
     Indication: ACROMEGALY
     Dosage: 10 MG, QMO
     Route: 030
     Dates: start: 20010102
  2. METFORMIN [Concomitant]
     Dosage: 1000 UKN, BID
  3. CRESTOR [Concomitant]
     Dosage: 5 UKN, QD

REACTIONS (4)
  - Nephrolithiasis [Unknown]
  - Blood pressure increased [Unknown]
  - Breast mass [Unknown]
  - Lymphadenopathy [Unknown]
